FAERS Safety Report 7965654-1 (Version None)
Quarter: 2011Q4

REPORT INFORMATION
  Report Type: 
  Country: None (occurrence: None)
  Receive Date: 20111208
  Receipt Date: 20111202
  Transmission Date: 20120403
  Serious: Yes (Other)
  Sender: FDA-Public Use
  Company Number: AU-JNJFOC-20111011988

PATIENT
  Sex: Male
  Weight: 74 kg

DRUGS (9)
  1. FOLIC ACID [Concomitant]
     Indication: PROPHYLAXIS
     Dates: start: 19910401
  2. LORATADINE [Concomitant]
     Indication: PROPHYLAXIS
     Route: 048
     Dates: start: 20110818
  3. IMODIUM [Concomitant]
     Indication: DIARRHOEA
     Route: 048
     Dates: start: 20090301
  4. GOLIMUMAB [Suspect]
     Indication: RHEUMATOID ARTHRITIS
     Route: 042
     Dates: start: 20110818
  5. CHLORSIG [Concomitant]
     Route: 047
     Dates: start: 20101104
  6. GOLIMUMAB [Suspect]
     Route: 042
     Dates: start: 20101011
  7. ZOVIRAX [Concomitant]
     Indication: HERPES SIMPLEX
     Route: 047
     Dates: start: 20110203
  8. ACETAMINOPHEN [Concomitant]
     Indication: PROPHYLAXIS
     Route: 048
     Dates: start: 20110818
  9. PREDNISONE TAB [Concomitant]
     Indication: RHEUMATOID ARTHRITIS
     Route: 048
     Dates: start: 19910401

REACTIONS (1)
  - URINE CYTOLOGY ABNORMAL [None]
